FAERS Safety Report 8362481-0 (Version None)
Quarter: 2012Q2

REPORT INFORMATION
  Report Type: 
  Country: None (occurrence: None)
  Receive Date: 20120514
  Receipt Date: 20120514
  Transmission Date: 20120825
  Serious: No
  Sender: FDA-Public Use
  Company Number: None

PATIENT
  Sex: Female
  Weight: 80.0599 kg

DRUGS (10)
  1. SYNTHROID [Concomitant]
  2. CLARITIN -AS NEEDED- [Concomitant]
  3. BYDUREON [Suspect]
     Indication: TYPE 2 DIABETES MELLITUS
     Dosage: 2 MG ONCE WEEKLY SQ
     Route: 058
  4. PRILOSEC OTC [Concomitant]
  5. METFORMIN HCL [Concomitant]
  6. HYZAAR [Concomitant]
  7. NORVASC [Concomitant]
  8. ONETOUCH ULTRA TEST STRIPS [Concomitant]
  9. VITAMIN D [Concomitant]
  10. ATENOLOL [Concomitant]

REACTIONS (2)
  - FLUSHING [None]
  - DYSPHONIA [None]
